FAERS Safety Report 9392501 (Version 3)
Quarter: 2013Q3

REPORT INFORMATION
  Report Type: Report from Study
  Country: US (occurrence: US)
  Receive Date: 20130710
  Receipt Date: 20130729
  Transmission Date: 20140515
  Serious: Yes (Hospitalization, Other)
  Sender: FDA-Public Use
  Company Number: US-ROCHE-1246341

PATIENT
  Age: 53 Year
  Sex: Female
  Weight: 93.52 kg

DRUGS (16)
  1. XOLAIR [Suspect]
     Indication: ASTHMA
     Route: 058
     Dates: start: 201111
  2. XOLAIR [Suspect]
     Route: 058
  3. XOLAIR [Suspect]
     Dosage: 3/4 DOSE
     Route: 058
     Dates: end: 201303
  4. EPIPEN [Concomitant]
  5. DETROL [Concomitant]
     Route: 048
     Dates: start: 2007
  6. METFORMIN [Concomitant]
     Indication: TYPE 2 DIABETES MELLITUS
     Dosage: QD
     Route: 048
     Dates: start: 201111
  7. XYZAL [Concomitant]
     Indication: HYPERSENSITIVITY
     Route: 048
     Dates: start: 2010
  8. XYZAL [Concomitant]
     Dosage: QD
     Route: 048
  9. SINGULAIR [Concomitant]
     Indication: ASTHMA
     Route: 048
     Dates: start: 2009
  10. ZANTAC [Concomitant]
     Indication: HYPERSENSITIVITY
     Route: 048
     Dates: start: 201111
  11. MEDROL [Concomitant]
     Route: 048
  12. ATROVENT [Concomitant]
     Dosage: 2 PUFF EVERY 6 HOURS AS REQUIRED
     Route: 055
  13. SOMA (UNITED STATES) [Concomitant]
     Route: 048
  14. FORADIL [Concomitant]
     Dosage: INHALATION
     Route: 065
  15. PERFOROMIST [Concomitant]
     Dosage: INHALED AS REQUIRED
     Route: 065
  16. RANITIDINE [Concomitant]
     Route: 048

REACTIONS (16)
  - Cerebrovascular accident [Not Recovered/Not Resolved]
  - Dyspnoea [Recovered/Resolved]
  - Hypersensitivity [Recovered/Resolved]
  - Muscle rigidity [Recovered/Resolved]
  - Dysarthria [Recovered/Resolved]
  - Ataxia [Not Recovered/Not Resolved]
  - Nerve injury [Not Recovered/Not Resolved]
  - Anaphylactic reaction [Recovered/Resolved]
  - Abasia [Not Recovered/Not Resolved]
  - Pharyngeal oedema [Recovered/Resolved]
  - Urticaria [Recovered/Resolved]
  - Mobility decreased [Recovering/Resolving]
  - Foot deformity [Not Recovered/Not Resolved]
  - Asthenia [Not Recovered/Not Resolved]
  - Decreased activity [Not Recovered/Not Resolved]
  - Palpitations [Unknown]
